FAERS Safety Report 8107575-X (Version None)
Quarter: 2012Q1

REPORT INFORMATION
  Report Type: 
  Country: None (occurrence: None)
  Receive Date: 20120202
  Receipt Date: 20120131
  Transmission Date: 20120608
  Serious: Yes (Other)
  Sender: FDA-Public Use
  Company Number: CN-ROCHE-1035292

PATIENT
  Age: 35 Year
  Sex: Female

DRUGS (3)
  1. METHYLPREDNISOLONE [Concomitant]
     Indication: IMMUNOSUPPRESSION
  2. MYCOPHENOLATE MOFETIL (CELLCEPT) [Suspect]
     Indication: IMMUNOSUPPRESSION
  3. CYCLOSPORINE [Concomitant]
     Indication: IMMUNOSUPPRESSION

REACTIONS (1)
  - CHOLECYSTITIS CHRONIC [None]
